FAERS Safety Report 8397772-0 (Version None)
Quarter: 2012Q2

REPORT INFORMATION
  Report Type: 
  Country: None (occurrence: None)
  Receive Date: 20120524
  Receipt Date: 20120509
  Transmission Date: 20120825
  Serious: Yes (Hospitalization, Other)
  Sender: FDA-Public Use
  Company Number: MCA-N-12-048

PATIENT
  Age: 39 Year
  Sex: Male

DRUGS (3)
  1. ARIPIPRAZOLE [Suspect]
     Indication: PSYCHOTIC DISORDER
     Dosage: 7.5 MG, H.S PO
     Route: 048
  2. LORAZEPAM [Concomitant]
  3. VALPROATE SODIUM [Suspect]
     Indication: AGGRESSION
     Dosage: 250 MG T.I.D PO
     Route: 048

REACTIONS (2)
  - CATATONIA [None]
  - BLOOD CREATINE PHOSPHOKINASE INCREASED [None]
